FAERS Safety Report 13859041 (Version 1)
Quarter: 2017Q3

REPORT INFORMATION
  Report Type: Spontaneous
  Country: US (occurrence: US)
  Receive Date: 20170811
  Receipt Date: 20170811
  Transmission Date: 20171127
  Serious: Yes (Hospitalization)
  Sender: FDA-Public Use
  Company Number: None

PATIENT
  Age: 70 Year
  Sex: Male
  Weight: 88.08 kg

DRUGS (10)
  1. KROGER ALLERGY RELIEF LORATADINE TABLETS 10MG/ANTIHISTAMINE 24 HOUR [Suspect]
     Active Substance: LORATADINE
     Indication: MULTIPLE ALLERGIES
     Route: 048
     Dates: start: 20170115, end: 20170415
  2. METOPROLOL TARTRATE. [Concomitant]
     Active Substance: METOPROLOL TARTRATE
  3. ATORVASTATIN CALCIUM. [Concomitant]
     Active Substance: ATORVASTATIN CALCIUM
  4. ACTIVATED CHARCOAL [Concomitant]
     Active Substance: ACTIVATED CHARCOAL
  5. ASPIRIN. [Suspect]
     Active Substance: ASPIRIN
  6. PANTOPRAZOLE [Concomitant]
     Active Substance: PANTOPRAZOLE
  7. ALJ [Concomitant]
  8. HERBS [Concomitant]
     Active Substance: HERBALS
  9. CORAL CALCIUM [Concomitant]
  10. PROACTAZYME [Concomitant]

REACTIONS (4)
  - Abdominal distension [None]
  - Flatulence [None]
  - Constipation [None]
  - Chest pain [None]

NARRATIVE: CASE EVENT DATE: 20170314
